FAERS Safety Report 8777134 (Version 1)
Quarter: 2012Q4

REPORT INFORMATION
  Report Type: 
  Country: FR (occurrence: FR)
  Receive Date: 20120911
  Receipt Date: 20120911
  Transmission Date: 20130627
  Serious: Yes (Death)
  Sender: FDA-Public Use
  Company Number: FR-ALLERGAN-1212506US

PATIENT
  Age: 75 Year
  Sex: Female

DRUGS (1)
  1. BOTULINUM TOXIN TYPE A UNK [Suspect]
     Indication: TRISMUS
     Dosage: UNK, single
     Dates: start: 200804, end: 200804

REACTIONS (6)
  - Respiratory failure [Fatal]
  - Muscular weakness [Unknown]
  - Dysphagia [Unknown]
  - Weight decreased [Not Recovered/Not Resolved]
  - Tongue disorder [Not Recovered/Not Resolved]
  - Dyskinesia [Not Recovered/Not Resolved]
